FAERS Safety Report 9531350 (Version 1)
Quarter: 2013Q3

REPORT INFORMATION
  Report Type: Report from Study
  Country: FR (occurrence: FR)
  Receive Date: 20130918
  Receipt Date: 20130918
  Transmission Date: 20140515
  Serious: Yes (Other)
  Sender: FDA-Public Use
  Company Number: FR-ASTELLAS-2013EU007948

PATIENT
  Age: 74 Year
  Sex: Male
  Weight: 86 kg

DRUGS (5)
  1. ENZALUTAMIDE [Suspect]
     Indication: PROSTATE CANCER
     Dosage: 160 MG, UNKNOWN/D
     Route: 048
     Dates: start: 20130618
  2. NORSET [Concomitant]
     Indication: ANTIDEPRESSANT THERAPY
     Dosage: 1 DF, UNKNOWN/D
     Route: 048
     Dates: start: 2013
  3. VENLAFAXINE [Concomitant]
     Indication: ANTIDEPRESSANT THERAPY
     Dosage: 1 DF, UNKNOWN/D
     Route: 048
     Dates: start: 2013
  4. RITALINE [Concomitant]
     Indication: RESTLESS LEGS SYNDROME
     Dosage: 1 DF, UNKNOWN/D
     Route: 048
     Dates: start: 2013
  5. IMOVANE [Concomitant]
     Indication: SLEEP DISORDER
     Dosage: 3.75 MG, UNKNOWN/D
     Route: 048
     Dates: start: 2013

REACTIONS (3)
  - Acute respiratory failure [Recovered/Resolved]
  - Colonic abscess [Unknown]
  - Anal fistula [Unknown]
